FAERS Safety Report 6766613-7 (Version None)
Quarter: 2010Q2

REPORT INFORMATION
  Report Type: 
  Country: None (occurrence: None)
  Receive Date: 20100611
  Receipt Date: 20100531
  Transmission Date: 20101027
  Serious: Yes (Hospitalization)
  Sender: FDA-Public Use
  Company Number: BE-BRISTOL-MYERS SQUIBB COMPANY-15137375

PATIENT

DRUGS (5)
  1. CETUXIMAB [Suspect]
     Indication: HEAD AND NECK CANCER
     Dosage: 1 DF = 5 MG/ML.
     Route: 042
  2. CARBOPLATIN [Suspect]
     Indication: HEAD AND NECK CANCER
  3. CISPLATIN [Suspect]
     Indication: HEAD AND NECK CANCER
     Route: 042
  4. CILENGITIDE [Suspect]
     Indication: HEAD AND NECK CANCER
     Route: 042
  5. FLUOROURACIL [Suspect]
     Indication: HEAD AND NECK CANCER
     Dosage: FROM DAY 1 TO 4 OF CYCLE
     Route: 042

REACTIONS (2)
  - MALAISE [None]
  - PYREXIA [None]
